FAERS Safety Report 7278367-9 (Version None)
Quarter: 2011Q1

REPORT INFORMATION
  Report Type: 
  Country: None (occurrence: None)
  Receive Date: 20110207
  Receipt Date: 20110127
  Transmission Date: 20110831
  Serious: Yes (Disabling)
  Sender: FDA-Public Use
  Company Number: FI-MERCK-1101FIN00028

PATIENT
  Age: 45 Year
  Sex: Female

DRUGS (3)
  1. RISEDRONATE SODIUM [Concomitant]
     Indication: OSTEOPOROSIS PROPHYLAXIS
     Route: 048
     Dates: start: 20040101, end: 20060101
  2. FOSAMAX [Suspect]
     Indication: OSTEOPOROSIS PROPHYLAXIS
     Route: 048
     Dates: start: 19980101, end: 20040101
  3. PREDNISOLONE [Concomitant]
     Indication: ARTHRITIS
     Route: 048
     Dates: start: 19980101

REACTIONS (5)
  - BONE DISORDER [None]
  - FEMUR FRACTURE [None]
  - FOOT FRACTURE [None]
  - PAIN IN EXTREMITY [None]
  - FOOT OPERATION [None]
